FAERS Safety Report 6203884-X (Version None)
Quarter: 2009Q2

REPORT INFORMATION
  Report Type: 
  Country: None (occurrence: None)
  Receive Date: 20090522
  Receipt Date: 20090507
  Transmission Date: 20091009
  Serious: Yes (Other)
  Sender: FDA-Public Use
  Company Number: 8045891

PATIENT
  Age: 8 Year
  Sex: Female
  Weight: 25.8 kg

DRUGS (2)
  1. XYZAL [Suspect]
     Indication: MULTIPLE ALLERGIES
     Dosage: 2.5 MG /D PO
     Route: 048
     Dates: start: 20090501, end: 20090505
  2. PREDNISONE [Concomitant]

REACTIONS (4)
  - ASTHENIA [None]
  - HYPERSENSITIVITY [None]
  - HYPERSOMNIA [None]
  - PAIN [None]
